FAERS Safety Report 13140668 (Version 2)
Quarter: 2017Q1

REPORT INFORMATION
  Report Type: Spontaneous
  Country: SG (occurrence: SG)
  Receive Date: 20170123
  Receipt Date: 20170201
  Transmission Date: 20170428
  Serious: Yes (Life-Threatening, Hospitalization, Other)
  Sender: FDA-Public Use
  Company Number: SG-009507513-1701SGP006038

PATIENT
  Age: 59 Year
  Sex: Female
  Weight: 60 kg

DRUGS (17)
  1. OMEPRAZOLE. [Concomitant]
     Active Substance: OMEPRAZOLE
     Indication: GASTRITIS PROPHYLAXIS
     Dosage: 40 MG, EVERY MORNING (OM), CONVERTED TO INTRAVENOUS WHEN BROUGHT TO ICU
     Route: 048
     Dates: start: 20170105, end: 20170112
  2. NOXAFIL [Suspect]
     Active Substance: POSACONAZOLE
     Dosage: 300 MG, QAM (300 MG, OM [EVERY MORNING])
     Route: 048
     Dates: start: 20170105, end: 20170111
  3. MORPHINE SULFATE. [Concomitant]
     Active Substance: MORPHINE SULFATE
     Indication: PAIN
  4. SULFAMETHOXAZOLE (+) TRIMETHOPRIM [Concomitant]
     Active Substance: SULFAMETHOXAZOLE\TRIMETHOPRIM
     Indication: PNEUMONIA
     Dosage: 960 MG, TIW (960 MG, THREE TIMES A WEEK)
     Route: 048
     Dates: start: 20161101
  5. CEFTRIAXONE. [Concomitant]
     Active Substance: CEFTRIAXONE
     Indication: STREPTOCOCCAL BACTERAEMIA
     Dosage: 2 G, QAM (OM)
     Route: 042
     Dates: start: 20170106, end: 20170111
  6. FENTANYL. [Concomitant]
     Active Substance: FENTANYL
     Indication: PAIN
  7. LACTULOSE. [Concomitant]
     Active Substance: LACTULOSE
     Indication: CONSTIPATION
     Dosage: 10 ML, TID (10 ML, THREE TIMES A DAY (TDS) AS NEEDED)
     Route: 048
     Dates: start: 20161219
  8. ACETAMINOPHEN. [Concomitant]
     Active Substance: ACETAMINOPHEN
     Indication: PYREXIA
  9. FENTANYL. [Concomitant]
     Active Substance: FENTANYL
     Indication: DYSPNOEA
     Dosage: 6 MICROGRAM, QH
     Route: 062
     Dates: start: 20170109, end: 20170111
  10. BISOPROLOL [Concomitant]
     Active Substance: BISOPROLOL
     Indication: SUPRAVENTRICULAR TACHYCARDIA
     Dosage: 2.5 MG, QAM (OM)
     Route: 048
     Dates: start: 20161114
  11. AMBISOME [Concomitant]
     Active Substance: AMPHOTERICIN B
     Indication: PULMONARY MYCOSIS
     Dosage: 300 MG, TIW
     Route: 042
     Dates: start: 20161219
  12. ACETAMINOPHEN. [Concomitant]
     Active Substance: ACETAMINOPHEN
     Indication: PAIN
     Dosage: 1 G, QID (1 G, FOUR TIMES A DAY (QDS) AS NEEDED)
     Route: 048
     Dates: start: 20170105, end: 20170112
  13. ENTECAVIR. [Suspect]
     Active Substance: ENTECAVIR
     Indication: ANTIVIRAL PROPHYLAXIS
     Dosage: 0.5 MG, QAM (0.5 MG, EVERY MORNING [OM])
     Route: 048
     Dates: start: 20161101, end: 20170111
  14. ACYCLOVIR. [Concomitant]
     Active Substance: ACYCLOVIR
     Indication: ANTIVIRAL PROPHYLAXIS
     Dosage: 400 MG, BID (400 MG, BD)
     Route: 048
     Dates: start: 20170105
  15. NOXAFIL [Suspect]
     Active Substance: POSACONAZOLE
     Indication: PULMONARY MYCOSIS
     Dosage: 600 MG, BID (300 MG, BD [TWICE A DAY] X 2 DOSE)
     Route: 048
     Dates: start: 20170105, end: 20170111
  16. MORPHINE SULFATE. [Concomitant]
     Active Substance: MORPHINE SULFATE
     Indication: DYSPNOEA
     Dosage: 5 MG, Q6H (AS NEEDED)
     Route: 048
     Dates: start: 20170105, end: 20170111
  17. ZOLPIDEM TARTRATE. [Concomitant]
     Active Substance: ZOLPIDEM TARTRATE
     Indication: INSOMNIA
     Dosage: 6.25 MG, QPM (6.25 MG, EVERY NIGHT (ON) AS NEEDED)
     Route: 048
     Dates: start: 20170106, end: 20170111

REACTIONS (1)
  - Lactic acidosis [Recovered/Resolved]

NARRATIVE: CASE EVENT DATE: 20170111
